FAERS Safety Report 17206799 (Version 1)
Quarter: 2019Q4

REPORT INFORMATION
  Report Type: Spontaneous
  Country: ES (occurrence: ES)
  Receive Date: 20191227
  Receipt Date: 20191227
  Transmission Date: 20200122
  Serious: Yes (Life-Threatening, Hospitalization)
  Sender: FDA-Public Use
  Company Number: ES-TEVA-2019-ES-1159330

PATIENT
  Sex: Male
  Weight: 88 kg

DRUGS (11)
  1. TELMISART?N + HIDROCLOROTIAZIDA [Concomitant]
     Dosage: 80/12,5
  2. OMEPRAZOL [Concomitant]
     Active Substance: OMEPRAZOLE
     Dosage: 20 MG
  3. DUODART [Concomitant]
     Active Substance: DUTASTERIDE\TAMSULOSIN
  4. PITAVASTATINA [Concomitant]
     Dosage: 2 MG
  5. CINQAERO 10 MG/ML CONCENTRADO PARA SOLUCION PARA PERFUSION, 1 VIAL DE [Suspect]
     Active Substance: RESLIZUMAB
     Indication: ASTHMA
     Dosage: MONTHLY;  1 VIAL DE 10 ML
     Route: 042
     Dates: start: 20180817
  6. VENTOLIN [Concomitant]
     Active Substance: ALBUTEROL SULFATE
  7. ALOPURINOL [Concomitant]
     Active Substance: ALLOPURINOL
     Dosage: 300 MG
  8. ESLICARBAZEPINA [Concomitant]
     Active Substance: ESLICARBAZEPINE
     Dosage: 800 MG
  9. SPIRIVARESPIMAT [Concomitant]
  10. METFORMINA [Concomitant]
     Active Substance: METFORMIN HYDROCHLORIDE
     Dosage: 425 MG C/12 H
  11. FORMODUAL [Concomitant]
     Active Substance: BECLOMETHASONE DIPROPIONATE\FORMOTEROL FUMARATE

REACTIONS (1)
  - Glioma [Recovering/Resolving]

NARRATIVE: CASE EVENT DATE: 20190927
